FAERS Safety Report 4647854-1 (Version None)
Quarter: 2005Q2

REPORT INFORMATION
  Report Type: 
  Country: None (occurrence: None)
  Receive Date: 20050428
  Receipt Date: 20050418
  Transmission Date: 20051028
  Serious: Yes (Death, Hospitalization)
  Sender: FDA-Public Use
  Company Number: HCM-0058

PATIENT
  Age: 74 Year
  Sex: Male

DRUGS (15)
  1. HYCAMTIN [Suspect]
     Dosage: 1.67MG PER DAY
     Route: 042
     Dates: start: 20021009, end: 20021013
  2. NITROGLYCERIN [Concomitant]
     Indication: PAIN PROPHYLAXIS
     Dosage: 25MG PER DAY
     Dates: start: 20020408, end: 20030108
  3. MECOBALAMIN [Concomitant]
     Indication: VITAMIN B12
     Dosage: 1500UG PER DAY
     Route: 048
     Dates: start: 20020921, end: 20030108
  4. ALUMINUM HYDROXIDE GEL [Concomitant]
     Indication: PROPHYLAXIS
     Dosage: 45ML PER DAY
     Route: 048
     Dates: start: 20020929, end: 20030108
  5. SUCRALFATE [Concomitant]
     Indication: ADRENOCORTICAL STEROID THERAPY
     Dosage: 3G PER DAY
     Route: 048
     Dates: start: 20021010, end: 20021017
  6. FAMOTIDINE [Concomitant]
     Indication: PROPHYLAXIS
     Dosage: 40MG PER DAY
     Route: 048
     Dates: start: 20021018, end: 20030108
  7. BETAMETHASONE SODIUM PHOSPHATE [Concomitant]
     Indication: ADRENOCORTICAL STEROID THERAPY
     Dosage: 1MG PER DAY
     Route: 048
     Dates: start: 20021018, end: 20030105
  8. SODIUM PICOSULPHATE [Concomitant]
     Indication: CONSTIPATION
     Route: 048
     Dates: start: 20021024, end: 20030108
  9. LEVOFLOXACIN [Concomitant]
     Indication: ANTIBACTERIAL PROPHYLAXIS
     Dosage: 400MG PER DAY
     Route: 048
     Dates: start: 20021101, end: 20021104
  10. URSODEOXYCHOLIC ACID [Concomitant]
     Indication: DRUG USE FOR UNKNOWN INDICATION
     Dosage: 300MG PER DAY
     Route: 048
     Dates: start: 20021101, end: 20030105
  11. MORPHINE HCL ELIXIR [Concomitant]
     Dosage: 15MG PER DAY
     Route: 048
     Dates: start: 20021012, end: 20021015
  12. MORPHINE SULFATE [Concomitant]
     Route: 048
     Dates: start: 20021016
  13. ONDANSETRON HYDROCHLORIDE [Concomitant]
     Indication: VOMITING
     Dosage: 4MG PER DAY
     Route: 048
     Dates: start: 20021009, end: 20021013
  14. GLYCYRRHIZIC ACID MONOAMMONIUM SALT+GLYCINE+CYSTINE [Concomitant]
     Dosage: 20ML PER DAY
     Route: 042
     Dates: start: 20021012, end: 20021106
  15. GLYCYRRHIZIN+METHIONINE [Concomitant]
     Dosage: 75MG PER DAY
     Route: 048
     Dates: start: 20021101, end: 20030108

REACTIONS (7)
  - ANAEMIA [None]
  - CANCER PAIN [None]
  - CONDITION AGGRAVATED [None]
  - LEUKOPENIA [None]
  - PYREXIA [None]
  - SMALL CELL LUNG CANCER STAGE UNSPECIFIED [None]
  - THROMBOCYTOPENIA [None]
